FAERS Safety Report 4539462-8 (Version None)
Quarter: 2004Q4

REPORT INFORMATION
  Report Type: 
  Country: None (occurrence: None)
  Receive Date: 20041228
  Receipt Date: 20041228
  Transmission Date: 20050328
  Serious: Yes (Other)
  Sender: FDA-Public Use
  Company Number: None

PATIENT
  Age: 30 Year
  Sex: Male

DRUGS (2)
  1. BACTRIM [Suspect]
     Dosage: TABLET
  2. BACTRIM DS [Suspect]
     Dosage: TABLET

REACTIONS (1)
  - MEDICATION ERROR [None]
